FAERS Safety Report 7273124-1 (Version None)
Quarter: 2010Q4

REPORT INFORMATION
  Report Type: 
  Country: None (occurrence: None)
  Receive Date: 20101201
  Receipt Date: 20100826
  Transmission Date: 20110411
  Serious: Yes (Other)
  Sender: FDA-Public Use
  Company Number: 308971

PATIENT
  Age: 64 Year
  Sex: Male
  Weight: 59.4 kg

DRUGS (16)
  1. NOVOLOG [Suspect]
     Indication: DIABETES MELLITUS
     Dosage: SEE IMAGE
     Route: 058
     Dates: start: 20100519, end: 20100519
  2. NOVOLOG [Suspect]
     Indication: DIABETES MELLITUS
     Dosage: SEE IMAGE
     Route: 058
     Dates: start: 20100527, end: 20100527
  3. NOVOLOG [Suspect]
     Indication: DIABETES MELLITUS
     Dosage: SEE IMAGE
     Route: 058
     Dates: start: 20100531, end: 20100531
  4. NOVOLOG [Suspect]
     Indication: DIABETES MELLITUS
     Dosage: SEE IMAGE
     Route: 058
     Dates: start: 20000101
  5. LANTUS [Suspect]
     Indication: DIABETES MELLITUS
     Dosage: SEE IMAGE
     Route: 058
     Dates: start: 20100501, end: 20100501
  6. LANTUS [Suspect]
     Indication: DIABETES MELLITUS
     Dosage: SEE IMAGE
     Route: 058
     Dates: start: 20100101
  7. LANTUS [Suspect]
     Indication: DIABETES MELLITUS
     Dosage: SEE IMAGE
     Route: 058
     Dates: start: 20100501
  8. LANTUS [Suspect]
     Indication: DIABETES MELLITUS
     Dosage: SEE IMAGE
     Route: 058
     Dates: start: 20100601
  9. LANTUS [Suspect]
     Indication: DIABETES MELLITUS
     Dates: start: 20100101, end: 20100401
  10. PRAVASTATIN [Concomitant]
  11. LISINOPRIL [Concomitant]
  12. FISH OIL (FISH OIL) [Concomitant]
  13. FOLIC ACID [Concomitant]
  14. MAGNESIUM (MAGNESIUM) [Concomitant]
  15. ASPIRIN [Concomitant]
  16. ALPHA LIPOIC ACID (THIOCTIC ACID) [Concomitant]

REACTIONS (8)
  - BLOOD GLUCOSE DECREASED [None]
  - BLOOD GLUCOSE INCREASED [None]
  - DAWN PHENOMENON [None]
  - FEELING ABNORMAL [None]
  - HYPOGLYCAEMIC UNCONSCIOUSNESS [None]
  - LIPODYSTROPHY ACQUIRED [None]
  - LOSS OF CONTROL OF LEGS [None]
  - MEDICATION ERROR [None]
